FAERS Safety Report 4619345-5 (Version None)
Quarter: 2005Q1

REPORT INFORMATION
  Report Type: 
  Country: None (occurrence: None)
  Receive Date: 20050325
  Receipt Date: 20050314
  Transmission Date: 20050727
  Serious: Yes (Hospitalization, Other)
  Sender: FDA-Public Use
  Company Number: US-MERCK-0503USA02438

PATIENT
  Age: 48 Year
  Sex: Male

DRUGS (6)
  1. VIOXX [Suspect]
     Indication: RHEUMATOID ARTHRITIS
     Route: 048
     Dates: start: 20000522
  2. VIOXX [Suspect]
     Route: 048
     Dates: start: 20020805
  3. VIOXX [Suspect]
     Route: 048
     Dates: start: 20010118
  4. VIOXX [Suspect]
     Indication: MALE SEXUAL DYSFUNCTION
     Route: 048
     Dates: start: 20000522
  5. VIOXX [Suspect]
     Route: 048
     Dates: start: 20020805
  6. VIOXX [Suspect]
     Route: 048
     Dates: start: 20010118

REACTIONS (22)
  - ACUTE CHEST SYNDROME [None]
  - ANGINA PECTORIS [None]
  - ANXIETY [None]
  - BLOOD TESTOSTERONE DECREASED [None]
  - CERVICOBRACHIAL SYNDROME [None]
  - DEAFNESS [None]
  - DEPRESSION [None]
  - ERECTILE DYSFUNCTION [None]
  - FLIGHT OF IDEAS [None]
  - INSOMNIA [None]
  - LARYNGITIS [None]
  - LIPIDS INCREASED [None]
  - LOSS OF LIBIDO [None]
  - NEPHROLITHIASIS [None]
  - PROSTATE INFECTION [None]
  - RHINITIS ALLERGIC [None]
  - SEXUAL DYSFUNCTION [None]
  - SKIN LESION [None]
  - SPINAL OSTEOARTHRITIS [None]
  - UPPER RESPIRATORY TRACT INFECTION [None]
  - VIRAL PHARYNGITIS [None]
  - VIRAL TONSILLITIS [None]
